FAERS Safety Report 12594256 (Version 4)
Quarter: 2017Q4

REPORT INFORMATION
  Report Type: Spontaneous
  Country: US (occurrence: US)
  Receive Date: 20160726
  Receipt Date: 20171002
  Transmission Date: 20180320
  Serious: Yes (Hospitalization, Other)
  Sender: FDA-Public Use
  Company Number: US-PFIZER INC-2016352938

PATIENT
  Age: 55 Year
  Sex: Female
  Weight: 108.84 kg

DRUGS (1)
  1. XELJANZ XR [Suspect]
     Active Substance: TOFACITINIB CITRATE
     Indication: RHEUMATOID ARTHRITIS
     Dosage: 11 MG, 1X/DAY
     Route: 048
     Dates: start: 201602

REACTIONS (6)
  - Tibia fracture [Recovered/Resolved]
  - Hyperkeratosis [Recovered/Resolved]
  - Food poisoning [Recovered/Resolved]
  - Skin infection [Recovered/Resolved]
  - Gastroenteritis viral [Recovered/Resolved]
  - Influenza [Recovered/Resolved]

NARRATIVE: CASE EVENT DATE: 2016
